FAERS Safety Report 13401509 (Version 6)
Quarter: 2018Q2

REPORT INFORMATION
  Report Type: Report from Study
  Country: US (occurrence: US)
  Receive Date: 20170404
  Receipt Date: 20180629
  Transmission Date: 20180711
  Serious: Yes (Hospitalization)
  Sender: FDA-Public Use
  Company Number: US-PFIZER INC-2017132843

PATIENT
  Age: 61 Year
  Sex: Male
  Weight: 95 kg

DRUGS (32)
  1. LINAGLIPTIN [Concomitant]
     Active Substance: LINAGLIPTIN
     Indication: DIABETES MELLITUS
     Dosage: 5 MG, DAILY
     Route: 048
     Dates: start: 20160909
  2. LOMOTIL /00384302/ [Concomitant]
     Active Substance: LOPERAMIDE HYDROCHLORIDE
     Indication: DIARRHOEA
     Dosage: UNK
     Route: 048
     Dates: start: 20161215
  3. IMODIUM [Concomitant]
     Active Substance: LOPERAMIDE HYDROCHLORIDE
     Indication: DIARRHOEA
     Dosage: 2 MG, AS NEEDED
     Route: 048
     Dates: start: 20170119
  4. LOSARTAN. [Concomitant]
     Active Substance: LOSARTAN
     Dosage: 50 MG, DAILY
     Route: 048
     Dates: start: 20170116
  5. DENOSUMAB [Concomitant]
     Active Substance: DENOSUMAB
     Indication: BLOOD CALCIUM INCREASED
     Dosage: 120 MG, UNK
     Route: 058
     Dates: start: 20161201, end: 20161201
  6. LEVEMIR [Concomitant]
     Active Substance: INSULIN DETEMIR
     Indication: DIABETES MELLITUS
     Dosage: 10 IU, UNK
     Route: 058
     Dates: start: 20170105
  7. METOPROLOL TARTRATE. [Concomitant]
     Active Substance: METOPROLOL TARTRATE
     Indication: HYPERTENSION
     Dosage: 25 MG, 2X/DAY
     Route: 048
     Dates: start: 20170302
  8. OMEPRAZOLE. [Concomitant]
     Active Substance: OMEPRAZOLE
     Indication: GASTROOESOPHAGEAL REFLUX DISEASE
     Dosage: 20 MG, DAILY
     Route: 048
     Dates: start: 20160909
  9. PEPTO-BISMOL [Concomitant]
     Active Substance: BISMUTH SUBSALICYLATE
     Indication: DIARRHOEA
     Dosage: PEPTOBISMOL SUSPENSION DOSE: NA UNIT: UNK, AS NEEDED
     Route: 048
     Dates: start: 20161213
  10. PREDNISONE. [Concomitant]
     Active Substance: PREDNISONE
     Dosage: 20 MG, AS NEEDED
     Route: 048
     Dates: start: 20161227
  11. CHOLECALCIFEROL [Concomitant]
     Active Substance: CHOLECALCIFEROL
     Indication: GASTROOESOPHAGEAL REFLUX DISEASE
     Dosage: 2000 IU, DAILY
     Route: 048
     Dates: start: 20160909
  12. SOLU-MEDROL [Concomitant]
     Active Substance: METHYLPREDNISOLONE SODIUM SUCCINATE
     Indication: PAIN
     Dosage: 40 MG, OTHER
     Route: 042
     Dates: start: 20161216, end: 20161220
  13. APIDRA [Concomitant]
     Active Substance: INSULIN GLULISINE
     Indication: DIABETES MELLITUS
     Dosage: 100 IU, OTHER
     Route: 042
     Dates: start: 20170302
  14. X4P-001 [Suspect]
     Active Substance: INVESTIGATIONAL PRODUCT
     Indication: RENAL CELL CARCINOMA
     Dosage: 600 MG, 1X/DAY
     Route: 048
     Dates: start: 20161208, end: 20170309
  15. OXYCODONE [Concomitant]
     Active Substance: OXYCODONE
     Indication: PAIN
     Dosage: 10 MG, UNK
     Route: 048
     Dates: start: 20161128
  16. CHOLESTYRAMINE. [Concomitant]
     Active Substance: CHOLESTYRAMINE
     Indication: DIARRHOEA
     Dosage: CHOLESTYRAMINE POWDER, 4 G, THREE TIMES A DAY
     Route: 048
     Dates: start: 20161220
  17. ACETAMINOPHEN. [Concomitant]
     Active Substance: ACETAMINOPHEN
     Indication: PYREXIA
     Dosage: 500 MG, OTHER
     Route: 048
     Dates: start: 20170302
  18. LEVOTHYROXINE. [Concomitant]
     Active Substance: LEVOTHYROXINE
     Indication: HYPOTHYROIDISM
     Dosage: 137 UG, DAILY
     Route: 048
     Dates: start: 20160909
  19. FENTANYL /00174602/ [Concomitant]
     Active Substance: FENTANYL
     Indication: BACK PAIN
     Dosage: UNK
     Route: 061
     Dates: start: 20170105, end: 20170316
  20. FENTANYL /00174602/ [Concomitant]
     Active Substance: FENTANYL
     Dosage: UNK
     Route: 061
     Dates: start: 20170316
  21. TRADJENTA [Concomitant]
     Active Substance: LINAGLIPTIN
     Indication: DIABETES MELLITUS
     Dosage: 5 MG, DAILY
     Route: 048
  22. NORMAL SALINE [Concomitant]
     Active Substance: SODIUM CHLORIDE
     Indication: DEHYDRATION
     Dosage: UNK
     Dates: start: 20161216, end: 20161220
  23. OXYCODONE [Concomitant]
     Active Substance: OXYCODONE
     Dosage: 5 MG, UNK
     Route: 048
     Dates: start: 20160909
  24. LOSARTAN. [Concomitant]
     Active Substance: LOSARTAN
     Indication: HYPERTENSION
     Dosage: 50 MG, DAILY
     Route: 048
     Dates: start: 20160909
  25. AXITINIB [Suspect]
     Active Substance: AXITINIB
     Indication: RENAL CELL CARCINOMA
     Dosage: 5 MG, 2X/DAY
     Route: 048
     Dates: start: 20161208, end: 20170309
  26. PREDNISONE. [Concomitant]
     Active Substance: PREDNISONE
     Indication: ARTHRALGIA
     Dosage: 5 MG, 2X/DAY
     Route: 048
     Dates: start: 20161128
  27. PREDNISONE. [Concomitant]
     Active Substance: PREDNISONE
     Indication: PAIN
     Dosage: 10 MG, AS NEEDED
     Route: 048
     Dates: start: 20161213, end: 20161227
  28. SIMVASTATIN. [Concomitant]
     Active Substance: SIMVASTATIN
     Indication: HYPERCHOLESTEROLAEMIA
     Dosage: 20 MG, DAILY
     Route: 048
     Dates: start: 20160909
  29. ONDANSETRON [Concomitant]
     Active Substance: ONDANSETRON
     Indication: NAUSEA
     Dosage: 8 MG, AS NEEDED
     Route: 048
     Dates: start: 20161208
  30. IMODIUM AD [Concomitant]
     Active Substance: LOPERAMIDE HYDROCHLORIDE
     Indication: DIARRHOEA
     Dosage: UNK, AS NEEDED
     Route: 048
     Dates: start: 20161213
  31. MAGNESIUM OXIDE. [Concomitant]
     Active Substance: MAGNESIUM OXIDE
     Indication: GASTROOESOPHAGEAL REFLUX DISEASE
     Dosage: 500 MG, DAILY
     Route: 048
  32. MEDROL DOSE PACK [Concomitant]
     Active Substance: METHYLPREDNISOLONE
     Indication: PAIN
     Dosage: 4 MG, OTHER
     Route: 048
     Dates: start: 20161213

REACTIONS (1)
  - Colitis [Recovered/Resolved]

NARRATIVE: CASE EVENT DATE: 20170321
